FAERS Safety Report 14488244 (Version 1)
Quarter: 2018Q1

REPORT INFORMATION
  Report Type: Report from Study
  Country: US (occurrence: US)
  Receive Date: 20180205
  Receipt Date: 20180205
  Transmission Date: 20180509
  Serious: Yes (Hospitalization, Other)
  Sender: FDA-Public Use
  Company Number: US-MYLANLABS-2018M1008281

PATIENT
  Age: 80 Year
  Sex: Female
  Weight: 76.8 kg

DRUGS (4)
  1. CARBOPLATIN. [Suspect]
     Active Substance: CARBOPLATIN
     Indication: TRANSITIONAL CELL CARCINOMA
     Dosage: 350 MG, QD
     Route: 042
     Dates: start: 20170613
  2. PACLITAXEL. [Suspect]
     Active Substance: PACLITAXEL
     Indication: TRANSITIONAL CELL CARCINOMA
     Dosage: 368 MG, ONCE
     Route: 042
     Dates: start: 20170613
  3. PEMBROLIZUMAB. [Suspect]
     Active Substance: PEMBROLIZUMAB
     Indication: TRANSITIONAL CELL CARCINOMA
     Dosage: 200 MG, ONCE
     Route: 042
     Dates: start: 20170713
  4. INCB024360 [Suspect]
     Active Substance: EPACADOSTAT
     Indication: TRANSITIONAL CELL CARCINOMA
     Dosage: 100 MG, BID
     Route: 048
     Dates: start: 20170613, end: 201706

REACTIONS (3)
  - Vomiting [Recovered/Resolved]
  - Hyponatraemia [Recovered/Resolved]
  - Abdominal pain [Recovered/Resolved]

NARRATIVE: CASE EVENT DATE: 20170618
